FAERS Safety Report 20906789 (Version 1)
Quarter: 2022Q2

REPORT INFORMATION
  Report Type: Spontaneous
  Country: PL (occurrence: PL)
  Receive Date: 20220602
  Receipt Date: 20220602
  Transmission Date: 20220721
  Serious: Yes (Other)
  Sender: FDA-Public Use
  Company Number: PL-NOVARTISPH-NVSC2022PL122517

PATIENT
  Age: 59 Year
  Sex: Female

DRUGS (1)
  1. RYDAPT [Suspect]
     Active Substance: MIDOSTAURIN
     Indication: Systemic mastocytosis
     Dosage: UNK, (2 X 100 MG)
     Route: 048

REACTIONS (5)
  - Cytopenia [Unknown]
  - Myelodysplastic syndrome [Unknown]
  - Systemic mastocytosis [Recovering/Resolving]
  - Malignant neoplasm progression [Recovering/Resolving]
  - Dysplasia [Unknown]
